FAERS Safety Report 5074756-1 (Version None)
Quarter: 2006Q3

REPORT INFORMATION
  Report Type: 
  Country: None (occurrence: None)
  Receive Date: 20060804
  Receipt Date: 20060727
  Transmission Date: 20061208
  Serious: Yes (Hospitalization, Other)
  Sender: FDA-Public Use
  Company Number: 29278

PATIENT
  Age: 69 Year
  Sex: Female

DRUGS (1)
  1. LEUCOVORIN CALCIUM [Suspect]
     Indication: COLORECTAL CANCER
     Dosage: 400MG/M2/Q2WKS/IV NOS
     Route: 042
     Dates: start: 20060403

REACTIONS (1)
  - POLYNEUROPATHY [None]
